FAERS Safety Report 16812868 (Version 1)
Quarter: 2019Q3

REPORT INFORMATION
  Report Type: Spontaneous
  Country: US (occurrence: US)
  Receive Date: 20190916
  Receipt Date: 20190916
  Transmission Date: 20191005
  Serious: No
  Sender: FDA-Public Use
  Company Number: PHEH2019US037857

PATIENT
  Sex: Male

DRUGS (1)
  1. ATORVASTATIN CALCIUM SANDOZ [Suspect]
     Active Substance: ATORVASTATIN CALCIUM
     Indication: PRODUCT USED FOR UNKNOWN INDICATION
     Dosage: 10 MG, UNK
     Route: 065
     Dates: start: 20190909, end: 20190910

REACTIONS (3)
  - Dizziness [Unknown]
  - Insomnia [Unknown]
  - Tinnitus [Unknown]
